FAERS Safety Report 16405796 (Version 3)
Quarter: 2019Q3

REPORT INFORMATION
  Report Type: Report from Study
  Country: JM (occurrence: JM)
  Receive Date: 20190607
  Receipt Date: 20190813
  Transmission Date: 20191004
  Serious: Yes (Death, Other)
  Sender: FDA-Public Use
  Company Number: PHHY2019JM131541

PATIENT
  Age: 17 Year
  Sex: Male
  Weight: 50 kg

DRUGS (5)
  1. CYTARABINE. [Concomitant]
     Active Substance: CYTARABINE
     Indication: CHRONIC MYELOID LEUKAEMIA TRANSFORMATION
     Dosage: 160 MG, 1/52
     Route: 042
     Dates: start: 20190221
  2. CYTARABINE. [Concomitant]
     Active Substance: CYTARABINE
     Dosage: 3 G, BID (1/7)
     Route: 042
     Dates: start: 20190522
  3. TASIGNA [Suspect]
     Active Substance: NILOTINIB
     Indication: CHRONIC MYELOID LEUKAEMIA TRANSFORMATION
     Dosage: 400 MG, BID
     Route: 065
     Dates: start: 20180812, end: 20190513
  4. CYTARABINE. [Concomitant]
     Active Substance: CYTARABINE
     Dosage: 20 MG, BID (6/7)
     Route: 058
     Dates: start: 20190313, end: 20190518
  5. DOXORUBICIN [Concomitant]
     Active Substance: DOXORUBICIN
     Indication: CHRONIC MYELOID LEUKAEMIA TRANSFORMATION
     Dosage: 48 MG, UNK
     Route: 042
     Dates: start: 20190221, end: 20190223

REACTIONS (25)
  - Headache [Fatal]
  - Vomiting [Fatal]
  - Blast cells present [Unknown]
  - Blood sodium decreased [Recovering/Resolving]
  - Mean cell haemoglobin decreased [Unknown]
  - Neutrophil count increased [Unknown]
  - Lymphocyte count increased [Unknown]
  - Blood magnesium increased [Unknown]
  - Mean cell haemoglobin concentration decreased [Unknown]
  - Thrombocytopenia [Fatal]
  - Red cell distribution width increased [Unknown]
  - Chloroma [Unknown]
  - Febrile neutropenia [Unknown]
  - Gamma-glutamyltransferase increased [Unknown]
  - Haematocrit decreased [Unknown]
  - Monocyte count increased [Unknown]
  - Basophil count increased [Unknown]
  - Eosinophil count decreased [Unknown]
  - Blood phosphorus increased [Unknown]
  - Haemorrhage intracranial [Fatal]
  - White blood cell count increased [Unknown]
  - Blood potassium decreased [Recovering/Resolving]
  - Blood chloride decreased [Recovering/Resolving]
  - Haemoglobin decreased [Unknown]
  - Mean platelet volume increased [Unknown]

NARRATIVE: CASE EVENT DATE: 20190109
